FAERS Safety Report 10668649 (Version 2)
Quarter: 2015Q1

REPORT INFORMATION
  Report Type: Spontaneous
  Country: US (occurrence: None)
  Receive Date: 20141217
  Receipt Date: 20150319
  Transmission Date: 20150720
  Serious: No
  Sender: FDA-Public Use
  Company Number: 2014CT000101

PATIENT
  Age: 30 Year
  Sex: Male
  Weight: 96.16 kg

DRUGS (1)
  1. KORLYM [Suspect]
     Active Substance: MIFEPRISTONE
     Indication: CUSHING^S SYNDROME
     Dates: start: 20140205

REACTIONS (3)
  - Headache [None]
  - Hypothyroidism [None]
  - Gynaecomastia [None]

NARRATIVE: CASE EVENT DATE: 20140620
